FAERS Safety Report 8459117-7 (Version None)
Quarter: 2012Q2

REPORT INFORMATION
  Report Type: 
  Country: None (occurrence: None)
  Receive Date: 20120622
  Receipt Date: 20120612
  Transmission Date: 20120825
  Serious: Yes (Hospitalization)
  Sender: FDA-Public Use
  Company Number: DE-PFIZER INC-2012130955

PATIENT
  Age: 64 Year
  Sex: Male
  Weight: 76 kg

DRUGS (6)
  1. ALLOPURINOL [Concomitant]
  2. SUNITINIB MALATE [Suspect]
     Indication: METASTATIC RENAL CELL CARCINOMA
     Dosage: 50 MG, 1X/DAY
     Route: 048
     Dates: start: 20110429
  3. LORAZEPAM [Concomitant]
     Dosage: 1 MG, 1X/DAY
     Dates: start: 20110617
  4. ASPIRIN [Concomitant]
     Dosage: 100 MG, 1X/DAY
     Dates: start: 20110326
  5. BISOPROLOL [Concomitant]
     Dosage: 2.5 MG, 1X/DAY
     Dates: start: 20050101
  6. MIRTAZAPINE [Concomitant]
     Dosage: 30 MG, 1X/DAY
     Dates: start: 20120328

REACTIONS (1)
  - SYNCOPE [None]
